FAERS Safety Report 8558176-0 (Version None)
Quarter: 2012Q3

REPORT INFORMATION
  Report Type: 
  Country: None (occurrence: None)
  Receive Date: 20120801
  Receipt Date: 20120720
  Transmission Date: 20120928
  Serious: Yes (Hospitalization)
  Sender: FDA-Public Use
  Company Number: JP-NAPPMUNDI-MAG-2012-0002212

PATIENT
  Age: 80 Year
  Sex: Female

DRUGS (1)
  1. BUPRENORPHINE [Suspect]
     Indication: SPINAL COLUMN STENOSIS
     Dosage: 10 MCG, Q1H
     Route: 062
     Dates: end: 20120620

REACTIONS (2)
  - LUMBAR SPINAL STENOSIS [None]
  - APPLICATION SITE ERYTHEMA [None]
